FAERS Safety Report 6772042-2 (Version None)
Quarter: 2010Q2

REPORT INFORMATION
  Report Type: 
  Country: None (occurrence: None)
  Receive Date: 20100616
  Receipt Date: 20100615
  Transmission Date: 20101027
  Serious: Yes (Hospitalization)
  Sender: FDA-Public Use
  Company Number: A0807692A

PATIENT
  Age: 60 Year
  Sex: Female
  Weight: 69.5 kg

DRUGS (7)
  1. AVANDIA [Suspect]
     Dosage: 4MG PER DAY
     Route: 048
     Dates: start: 20030701, end: 20080101
  2. SIMVASTATIN [Concomitant]
  3. LISINOPRIL [Concomitant]
  4. TOPROL-XL [Concomitant]
  5. CLOPIDOGREL BISULFATE [Concomitant]
  6. LOVASTATIN [Concomitant]
  7. HUMULIN R [Concomitant]

REACTIONS (1)
  - MYOCARDIAL INFARCTION [None]
